FAERS Safety Report 7545975 (Version 2)
Quarter: 2013Q2

REPORT INFORMATION
  Report Type: Spontaneous
  Country: SE (occurrence: SE)
  Receive Date: 20100818
  Receipt Date: 20130425
  Transmission Date: 20140414
  Serious: Yes (Other)
  Sender: FDA-Public Use
  Company Number: SE-RB-014099-10

PATIENT
  Age: 31 Year
  Sex: Male

DRUGS (3)
  1. SUBOXONE TABLET [Suspect]
     Dosage: DOSING DETAILS UNKNOWN.
     Route: 065
  2. SUBOXONE TABLET [Suspect]
     Indication: DRUG ABUSE
     Route: 060
  3. CLONAZEPAM [Concomitant]
     Indication: PRODUCT USED FOR UNKNOWN INDICATION
     Route: 065

REACTIONS (1)
  - Hallucination [Not Recovered/Not Resolved]
